FAERS Safety Report 24659885 (Version 1)
Quarter: 2024Q4

REPORT INFORMATION
  Report Type: Report from Study
  Country: US (occurrence: US)
  Receive Date: 20241125
  Receipt Date: 20241125
  Transmission Date: 20250115
  Serious: Yes (Other)
  Sender: ALEXION PHARMACEUTICALS
  Company Number: US-ALXN-202411USA011029US

PATIENT

DRUGS (1)
  1. STRENSIQ [Suspect]
     Active Substance: ASFOTASE ALFA
     Dosage: UNK
     Route: 065

REACTIONS (17)
  - Neuropathy peripheral [Unknown]
  - Sinus congestion [Unknown]
  - Ear congestion [Unknown]
  - Immunoglobulins abnormal [Unknown]
  - Haemoglobin decreased [Unknown]
  - Mean cell haemoglobin increased [Unknown]
  - Monocyte count decreased [Unknown]
  - Eosinophil count increased [Unknown]
  - Nausea [Unknown]
  - Fatigue [Unknown]
  - Pain [Unknown]
  - Muscle spasms [Unknown]
  - Breast tenderness [Unknown]
  - Arthralgia [Not Recovered/Not Resolved]
  - Myalgia [Not Recovered/Not Resolved]
  - Gastrointestinal disorder [Unknown]
  - Diarrhoea [Unknown]
